FAERS Safety Report 20730383 (Version 3)
Quarter: 2022Q2

REPORT INFORMATION
  Report Type: Spontaneous
  Country: BR (occurrence: BR)
  Receive Date: 20220420
  Receipt Date: 20220523
  Transmission Date: 20220721
  Serious: No
  Sender: FDA-Public Use
  Company Number: BR-PFIZER INC-202200457147

PATIENT
  Age: 11 Year
  Sex: Female

DRUGS (1)
  1. GENOTROPIN [Suspect]
     Active Substance: SOMATROPIN
     Dosage: 1.95 MG

REACTIONS (4)
  - Wrong technique in device usage process [Unknown]
  - Liquid product physical issue [Unknown]
  - Device issue [Unknown]
  - Product prescribing error [Unknown]
